FAERS Safety Report 16336735 (Version 2)
Quarter: 2019Q2

REPORT INFORMATION
  Report Type: Spontaneous
  Country: US (occurrence: US)
  Receive Date: 20190521
  Receipt Date: 20190522
  Transmission Date: 20190711
  Serious: Yes (Other)
  Sender: FDA-Public Use
  Company Number: US-PANACEA BIOTEC LIMITED-000001

PATIENT
  Age: 72 Year

DRUGS (3)
  1. ACETYLSALICYLIC ACID [Concomitant]
     Active Substance: ASPIRIN
     Route: 065
  2. APIXABAN [Concomitant]
     Active Substance: APIXABAN
     Route: 065
  3. PRASUGREL. [Suspect]
     Active Substance: PRASUGREL
     Indication: PERIPHERAL VASCULAR DISORDER
     Dosage: TWO 60 MG FURTHER10 MG TWICE DAILY, MAINTENANCE DOSE INCREASED TO 20 MG TWICE DAILY

REACTIONS (2)
  - Peripheral ischaemia [Recovering/Resolving]
  - Therapeutic product effect incomplete [Unknown]
